FAERS Safety Report 16464536 (Version 2)
Quarter: 2019Q3

REPORT INFORMATION
  Report Type: Spontaneous
  Country: GB (occurrence: GB)
  Receive Date: 20190621
  Receipt Date: 20190724
  Transmission Date: 20191004
  Serious: Yes (Other)
  Sender: FDA-Public Use
  Company Number: PHHY2019GB139312

PATIENT
  Age: 55 Year
  Sex: Female

DRUGS (3)
  1. QUETIAPINE. [Suspect]
     Active Substance: QUETIAPINE
     Indication: PSYCHOTIC DISORDER
     Dosage: 100 MG, QD
     Route: 065
  2. CITALOPRAM [Suspect]
     Active Substance: CITALOPRAM HYDROBROMIDE
     Indication: ANTIDEPRESSANT THERAPY
     Dosage: 40 MG, QD
     Route: 065
  3. LITHIUM. [Suspect]
     Active Substance: LITHIUM
     Indication: PSYCHOTIC DISORDER
     Dosage: 675 MG, QD
     Route: 065

REACTIONS (8)
  - Ataxia [Unknown]
  - Postural tremor [Unknown]
  - Myoclonus [Unknown]
  - Cerebellar atrophy [Unknown]
  - Tremor [Unknown]
  - Action tremor [Unknown]
  - Cerebellar ataxia [Unknown]
  - Nervous system disorder [Unknown]
